FAERS Safety Report 8154032-0 (Version None)
Quarter: 2012Q1

REPORT INFORMATION
  Report Type: 
  Country: None (occurrence: None)
  Receive Date: 20120221
  Receipt Date: 20120221
  Transmission Date: 20120608
  Serious: Yes (Hospitalization)
  Sender: FDA-Public Use
  Company Number: None

PATIENT
  Age: 51 Year
  Sex: Female
  Weight: 56.699 kg

DRUGS (2)
  1. CARISOPRODOL [Suspect]
     Indication: MUSCULOSKELETAL PAIN
     Dosage: 1 TABLET
     Route: 048
     Dates: start: 20120211, end: 20120211
  2. CARISOPRODOL [Suspect]
     Indication: NECK PAIN
     Dosage: 1 TABLET
     Route: 048
     Dates: start: 20120211, end: 20120211

REACTIONS (5)
  - UNEVALUABLE EVENT [None]
  - VOMITING [None]
  - DIZZINESS [None]
  - FALL [None]
  - ASTHENIA [None]
